FAERS Safety Report 6528828-2 (Version None)
Quarter: 2010Q1

REPORT INFORMATION
  Report Type: 
  Country: None (occurrence: None)
  Receive Date: 20100106
  Receipt Date: 20091228
  Transmission Date: 20100710
  Serious: Yes (Hospitalization)
  Sender: FDA-Public Use
  Company Number: FR-WYE-H12819510

PATIENT
  Age: 80 Year
  Sex: Female

DRUGS (9)
  1. CORDARONE [Suspect]
     Indication: ARRHYTHMIA
     Route: 048
  2. PROZAC [Concomitant]
  3. PREVISCAN [Concomitant]
  4. ZOLOFT [Concomitant]
  5. FRACTAL [Concomitant]
  6. XANAX [Concomitant]
  7. ESOMEPRAZOLE SODIUM (NEXIUM) [Concomitant]
  8. KARDEGIC [Suspect]
     Indication: ARRHYTHMIA
     Dosage: 1 UNIT EVERY 1 DAY
     Route: 048
  9. EBIXA [Concomitant]

REACTIONS (1)
  - INTRAVASCULAR HAEMOLYSIS [None]
